FAERS Safety Report 8817794 (Version 1)
Quarter: 2012Q4

REPORT INFORMATION
  Report Type: 
  Country: AR (occurrence: AR)
  Receive Date: 20121001
  Receipt Date: 20121001
  Transmission Date: 20130627
  Serious: Yes (Hospitalization)
  Sender: FDA-Public Use
  Company Number: PHHY2012AR084885

PATIENT
  Age: 68 Year
  Sex: Female

DRUGS (2)
  1. GALVUS [Suspect]
     Dosage: 50 mg, daily
     Dates: start: 2010
  2. DIOVAN [Suspect]
     Indication: BLOOD PRESSURE
     Dosage: 160 mg, daily
     Dates: start: 2010

REACTIONS (3)
  - Urinary incontinence [Recovering/Resolving]
  - Dyspnoea [Not Recovered/Not Resolved]
  - Blood pressure increased [Recovering/Resolving]
